FAERS Safety Report 14266409 (Version 1)
Quarter: 2017Q4

REPORT INFORMATION
  Report Type: Spontaneous
  Country: US (occurrence: None)
  Receive Date: 20171208
  Receipt Date: 20171208
  Transmission Date: 20180321
  Serious: Yes (Death)
  Sender: FDA-Public Use
  Company Number: None

PATIENT
  Age: 53 Year
  Sex: Male

DRUGS (1)
  1. STIVARGA [Suspect]
     Active Substance: REGORAFENIB
     Indication: RECTAL CANCER
     Dosage: 3 TABLETS DAILY FOR 21 DAYS. OFF 7 DAYS ORALLY
     Route: 048
     Dates: start: 20171004, end: 20171122

REACTIONS (1)
  - Death [None]

NARRATIVE: CASE EVENT DATE: 20171123
